FAERS Safety Report 21033629 (Version 1)
Quarter: 2022Q3

REPORT INFORMATION
  Report Type: Spontaneous
  Country: FR (occurrence: FR)
  Receive Date: 20220701
  Receipt Date: 20220701
  Transmission Date: 20221027
  Serious: Yes (Hospitalization)
  Sender: FDA-Public Use
  Company Number: None

PATIENT
  Age: 3 Year
  Sex: Male
  Weight: 14 kg

DRUGS (12)
  1. METHOTREXATE (METHOTREXATE SODIUM) [Suspect]
     Active Substance: METHOTREXATE SODIUM
     Indication: Burkitt^s lymphoma stage IV
     Dosage: UNIT DOSE: 5000 MG, FREQUENCY TIME: 1 TOTAL, DURATION: 1 DAY
     Route: 041
     Dates: start: 20220103, end: 20220103
  2. DOXORUBICIN [Suspect]
     Active Substance: DOXORUBICIN
     Indication: Burkitt^s lymphoma stage IV
     Dosage: UNIT DOSE: 37 MG, FREQUENCY TIME: 1 TOTAL, DURATION: 1 DAY
     Route: 042
     Dates: start: 20220104, end: 20220104
  3. CYCLOPHOSPHAMIDE [Suspect]
     Active Substance: CYCLOPHOSPHAMIDE
     Indication: Burkitt^s lymphoma stage IV
     Dosage: UNIT DOSE: 310 MG, FREQUENCY TIME: 1 DAY, DURATION: 1 DAY
     Route: 041
     Dates: start: 20220104, end: 20220105
  4. METHOTREXATE [Suspect]
     Active Substance: METHOTREXATE
     Indication: Burkitt^s lymphoma stage IV
     Dosage: UNIT DOSE: 15 MG, FREQUENCY TIME: 1 TOTAL, DURATION: 1 DAY
     Route: 024
     Dates: start: 20220104, end: 20220104
  5. CYTARABINE [Suspect]
     Active Substance: CYTARABINE
     Indication: Burkitt^s lymphoma stage IV
     Dosage: UNIT DOSE: 30 MG, FREQUENCY TIME: 1 TOTAL, DURATION: 1 DAY
     Route: 024
     Dates: start: 20220104, end: 20220104
  6. VINCRISTINE [Suspect]
     Active Substance: VINCRISTINE
     Indication: Burkitt^s lymphoma stage IV
     Dosage: UNIT DOSE: 1.2 MG, FREQUENCY TIME: 1 TOTAL, DURATION: 1 DAY
     Route: 041
     Dates: start: 20220103, end: 20220103
  7. HYDROCORTISONE [Concomitant]
     Active Substance: HYDROCORTISONE
     Indication: Product used for unknown indication
  8. LEUCOVORIN CALCIUM [Concomitant]
     Active Substance: LEUCOVORIN CALCIUM
     Indication: Product used for unknown indication
  9. BACTRIM [Concomitant]
     Active Substance: SULFAMETHOXAZOLE\TRIMETHOPRIM
     Indication: Product used for unknown indication
  10. ONDANSETRON HYDROCHLORIDE [Concomitant]
     Active Substance: ONDANSETRON HYDROCHLORIDE
     Indication: Product used for unknown indication
  11. POLYETHYLENE GLYCOL 4000 [Concomitant]
     Active Substance: POLYETHYLENE GLYCOL 4000
     Indication: Product used for unknown indication
     Dosage: FORM STRENGTH : 4 G, POWDER FOR ORAL SOLUTION IN SACHET-DOSE
  12. SODIUM BICARBONATE [Concomitant]
     Active Substance: SODIUM BICARBONATE
     Indication: Product used for unknown indication

REACTIONS (3)
  - Febrile bone marrow aplasia [Recovered/Resolved]
  - Anal inflammation [Recovered/Resolved]
  - Mucosal inflammation [Recovered/Resolved]

NARRATIVE: CASE EVENT DATE: 20220101
